FAERS Safety Report 13100967 (Version 1)
Quarter: 2017Q1

REPORT INFORMATION
  Report Type: Spontaneous
  Country: IT (occurrence: IT)
  Receive Date: 20170110
  Receipt Date: 20170110
  Transmission Date: 20170428
  Serious: Yes (Other)
  Sender: FDA-Public Use
  Company Number: IT-TEVA-726276ACC

PATIENT
  Age: 39 Year
  Sex: Female

DRUGS (3)
  1. DELORAZEPAM [Suspect]
     Active Substance: DELORAZEPAM
  2. PAROXETINE. [Suspect]
     Active Substance: PAROXETINE
  3. ALOPERIDOLO [Suspect]
     Active Substance: HALOPERIDOL

REACTIONS (3)
  - Self-medication [Unknown]
  - Apathy [Unknown]
  - Intentional self-injury [Unknown]
